FAERS Safety Report 5028968-3 (Version None)
Quarter: 2006Q2

REPORT INFORMATION
  Report Type: 
  Country: None (occurrence: None)
  Receive Date: 20060619
  Receipt Date: 20060123
  Transmission Date: 20061013
  Serious: Yes (Other)
  Sender: FDA-Public Use
  Company Number: PHMT2006CA00567

PATIENT
  Age: 62 Year
  Sex: Female
  Weight: 68.027 kg

DRUGS (2)
  1. ZOMETA [Suspect]
     Indication: HYPERCALCAEMIA OF MALIGNANCY
     Dosage: 4MG , QMO
     Route: 042
     Dates: start: 20030501, end: 20050901
  2. CHEMOTHERAPEUTICS,OTHER [Concomitant]

REACTIONS (5)
  - GINGIVITIS [None]
  - OSTEITIS [None]
  - OSTEONECROSIS [None]
  - TOOTH ABSCESS [None]
  - TOOTH EXTRACTION [None]
